FAERS Safety Report 9339590 (Version 1)
Quarter: 2013Q2

REPORT INFORMATION
  Report Type: Spontaneous
  Country: FR (occurrence: FR)
  Receive Date: 20130610
  Receipt Date: 20130610
  Transmission Date: 20140414
  Serious: Yes (Hospitalization)
  Sender: FDA-Public Use
  Company Number: FR-SANOFI-AVENTIS-2013SA055200

PATIENT
  Age: 89 Year
  Sex: Female

DRUGS (3)
  1. RIFADINE [Suspect]
     Indication: DEVICE RELATED INFECTION
     Route: 048
     Dates: start: 20130306, end: 20130502
  2. FUCIDINE [Suspect]
     Indication: DEVICE RELATED INFECTION
     Route: 048
     Dates: start: 20130429, end: 20130502
  3. BACTRIM [Concomitant]
     Indication: DEVICE RELATED INFECTION
     Dates: start: 20130306, end: 20130429

REACTIONS (2)
  - Jaundice [Recovered/Resolved]
  - Cholestasis [Recovered/Resolved]
